FAERS Safety Report 17722236 (Version 1)
Quarter: 2020Q2

REPORT INFORMATION
  Report Type: Spontaneous
  Country: CA (occurrence: CA)
  Receive Date: 20200429
  Receipt Date: 20200429
  Transmission Date: 20200714
  Serious: Yes (Hospitalization, Other)
  Sender: FDA-Public Use
  Company Number: CA-ROCHE-2589656

PATIENT
  Age: 68 Year
  Sex: Female
  Weight: 63 kg

DRUGS (4)
  1. VALACYCLOVIR [Concomitant]
     Active Substance: VALACYCLOVIR HYDROCHLORIDE
     Indication: PRODUCT USED FOR UNKNOWN INDICATION
  2. RITUXIMAB. [Suspect]
     Active Substance: RITUXIMAB
     Indication: CHRONIC LYMPHOCYTIC LEUKAEMIA
     Dosage: 375 MG/M2 IV X1 FOLLOWED BY 1600MG SC X 5 DOSES AT 28 DAY INTERVAL X 5 DOSES
     Route: 058
     Dates: start: 201909, end: 202002
  3. RITUXIMAB. [Suspect]
     Active Substance: RITUXIMAB
     Indication: CHRONIC LYMPHOCYTIC LEUKAEMIA
     Dosage: 375 MG/M2 IV X1 FOLLOWED BY 1600MG SC X 5 DOSES AT 28 DAY INTERVAL X 5 DOSES
     Route: 042
     Dates: start: 20190815, end: 20200108
  4. BENDAMUSTINE [Suspect]
     Active Substance: BENDAMUSTINE
     Indication: CHRONIC LYMPHOCYTIC LEUKAEMIA
     Dosage: 90MG/M2 X 2 DAYS EVERY 28 DAYS X 6 CYCLES
     Route: 042
     Dates: start: 201908, end: 202002

REACTIONS (5)
  - Platelet count decreased [Unknown]
  - Progressive multifocal leukoencephalopathy [Recovering/Resolving]
  - Off label use [Unknown]
  - Kidney infection [Unknown]
  - Product use in unapproved indication [Unknown]

NARRATIVE: CASE EVENT DATE: 20200201
